FAERS Safety Report 8789655 (Version 2)
Quarter: 2012Q4

REPORT INFORMATION
  Report Type: Spontaneous
  Country: GB (occurrence: None)
  Receive Date: 20120906
  Receipt Date: 20121101
  Transmission Date: 20130627
  Serious: Yes (Hospitalization, Other)
  Sender: FDA-Public Use
  Company Number: DE-1193724

PATIENT
  Age: 74 Year
  Sex: Male
  Weight: 70 kg

DRUGS (4)
  1. TRAVATAN [Suspect]
     Indication: INTRAOCULAR PRESSURE INCREASED
     Dosage: ou, in the evening Ophthalmic
     Route: 047
  2. TRAVATAN [Suspect]
     Indication: GLAUCOMA
     Dosage: ou, in the evening Ophthalmic
     Route: 047
  3. TRAVATAN [Suspect]
     Dosage: ou, in the evening Ophthalmic
     Route: 047
  4. TRAVATAN [Suspect]
     Dosage: ou, in the evening Ophthalmic
     Route: 047

REACTIONS (13)
  - Retinal detachment [None]
  - Macular oedema [None]
  - Visual impairment [None]
  - Photophobia [None]
  - Eye pain [None]
  - Eye irritation [None]
  - Eye pruritus [None]
  - Hypoaesthesia eye [None]
  - Headache [None]
  - Pain [None]
  - Erythema [None]
  - Pruritus [None]
  - Skin hyperpigmentation [None]
